FAERS Safety Report 7706125-7 (Version None)
Quarter: 2011Q3

REPORT INFORMATION
  Report Type: 
  Country: None (occurrence: None)
  Receive Date: 20110801
  Receipt Date: 20101102
  Transmission Date: 20111222
  Serious: Yes (Death)
  Sender: FDA-Public Use
  Company Number: 253707USA

PATIENT
  Age: 28 Year
  Sex: Male

DRUGS (3)
  1. PACLITAXEL [Suspect]
  2. ETOPOSIDE [Suspect]
  3. BLEOMYCIN SULFATE [Suspect]

REACTIONS (1)
  - DEATH [None]
